FAERS Safety Report 6940051-6 (Version None)
Quarter: 2010Q3

REPORT INFORMATION
  Report Type: 
  Country: None (occurrence: None)
  Receive Date: 20100825
  Receipt Date: 20100816
  Transmission Date: 20110219
  Serious: Yes (Other)
  Sender: FDA-Public Use
  Company Number: US-JNJFOC-20100806059

PATIENT
  Sex: Male
  Weight: 82.56 kg

DRUGS (3)
  1. RISPERDAL [Suspect]
     Indication: MAJOR DEPRESSION
     Route: 048
  2. BLOOD PRESSURE MEDICATION NOS [Concomitant]
     Indication: BLOOD PRESSURE
     Route: 048
  3. LIPITOR [Concomitant]
     Indication: BLOOD CHOLESTEROL
     Route: 048

REACTIONS (2)
  - FAECAL INCONTINENCE [None]
  - URINARY INCONTINENCE [None]
